FAERS Safety Report 18225509 (Version 1)
Quarter: 2020Q3

REPORT INFORMATION
  Report Type: Spontaneous
  Country: ES (occurrence: ES)
  Receive Date: 20200903
  Receipt Date: 20200903
  Transmission Date: 20201103
  Serious: Yes (Life-Threatening, Hospitalization)
  Sender: FDA-Public Use
  Company Number: ES-SUN PHARMACEUTICAL INDUSTRIES LTD-2020RR-259726

PATIENT
  Age: 63 Year
  Sex: Female

DRUGS (10)
  1. GEMCITABINE. [Suspect]
     Active Substance: GEMCITABINE
     Dosage: 1000 MILLIGRAM/SQ. METER THREE CYCLES
     Route: 065
     Dates: start: 201406, end: 201409
  2. CARBOPLATIN. [Suspect]
     Active Substance: CARBOPLATIN
     Dosage: AREA UNDER THE CURVE OF 2; WEEKLY CARBOPLATIN MONOTHERAPY ()
     Route: 065
     Dates: start: 201611, end: 201702
  3. CARBOPLATIN. [Suspect]
     Active Substance: CARBOPLATIN
     Dosage: AREA UNDER THE CURVE OF 5; THREE CYCLES ()
     Route: 065
  4. CARBOPLATIN. [Suspect]
     Active Substance: CARBOPLATIN
     Dosage: SIX CYCLES; AREA UNDER THE CURVE OF 5 ()
     Route: 065
     Dates: start: 201204, end: 201209
  5. OLAPARIB. [Suspect]
     Active Substance: OLAPARIB
     Indication: MALIGNANT NEOPLASM PROGRESSION
     Dosage: 400 MILLIGRAM  12 H (HOURS)
     Route: 065
  6. CARBOPLATIN. [Suspect]
     Active Substance: CARBOPLATIN
     Indication: MALIGNANT NEOPLASM PROGRESSION
     Dosage: AREA UNDER THE CURVE OF 5; THREE CYCLES ()
     Route: 065
     Dates: start: 201406, end: 201409
  7. CAELYX [Suspect]
     Active Substance: DOXORUBICIN HYDROCHLORIDE
     Indication: OVARIAN CANCER
     Dosage: SIX CYCLES
     Route: 065
     Dates: start: 201507, end: 201512
  8. GEMCITABINE. [Suspect]
     Active Substance: GEMCITABINE
     Indication: OVARIAN CANCER RECURRENT
     Dosage: 1000 MILLIGRAM/SQ. METER THREE CYCLES
     Route: 065
  9. TRABECTEDIN [Suspect]
     Active Substance: TRABECTEDIN
     Indication: MALIGNANT NEOPLASM PROGRESSION
     Dosage: SIX CYCLES
     Route: 065
     Dates: start: 201507, end: 201512
  10. PACLITAXEL. [Suspect]
     Active Substance: PACLITAXEL
     Indication: OVARIAN CANCER
     Dosage: 175 MILLIGRAM/SQ. METER SIX CYCLES
     Route: 065
     Dates: start: 201204, end: 201209

REACTIONS (2)
  - Acute myeloid leukaemia [Unknown]
  - Gastrointestinal infection [Recovered/Resolved]
